FAERS Safety Report 11379542 (Version 3)
Quarter: 2017Q3

REPORT INFORMATION
  Report Type: Spontaneous
  Country: IN (occurrence: IN)
  Receive Date: 20150814
  Receipt Date: 20170824
  Transmission Date: 20171127
  Serious: Yes (Death, Hospitalization)
  Sender: FDA-Public Use
  Company Number: IN-SUN PHARMACEUTICAL INDUSTRIES LTD-2015RR-101639

PATIENT
  Age: 45 Year
  Sex: Female

DRUGS (4)
  1. IBUPROFEN. [Suspect]
     Active Substance: IBUPROFEN
     Indication: ARTHRALGIA
     Dosage: FROM 5 YEARS, SELF-MEDICATION
     Route: 065
  2. HALOPERIDOL. [Suspect]
     Active Substance: HALOPERIDOL
     Indication: ABNORMAL BEHAVIOUR
     Dosage: 10 MG /DAY FOR LAST 2 YEARS
     Route: 065
  3. TRIHEXYPHENIDYL [Suspect]
     Active Substance: TRIHEXYPHENIDYL
     Indication: ABNORMAL BEHAVIOUR
     Dosage: 6 MG/DAY FOR LAST 2 YEARS
     Route: 065
  4. RISPERIDONE. [Suspect]
     Active Substance: RISPERIDONE
     Indication: SCHIZOPHRENIA
     Dosage: 6 MG, DAILY FOR TWO MONTHS
     Route: 048

REACTIONS (5)
  - Intestinal obstruction [Recovered/Resolved]
  - Respiratory disorder [Fatal]
  - Faecaloma [Recovered/Resolved]
  - Self-medication [Unknown]
  - Large intestine perforation [Recovered/Resolved]
